FAERS Safety Report 11331454 (Version 2)
Quarter: 2015Q3

REPORT INFORMATION
  Report Type: Spontaneous
  Country: JP (occurrence: JP)
  Receive Date: 20150803
  Receipt Date: 20150828
  Transmission Date: 20151125
  Serious: Yes (Hospitalization)
  Sender: FDA-Public Use
  Company Number: PHJP2015JP012589

PATIENT
  Sex: Male

DRUGS (1)
  1. ONBREZ INHALATION CAPSUL [Suspect]
     Active Substance: INDACATEROL
     Indication: CHRONIC OBSTRUCTIVE PULMONARY DISEASE
     Dosage: 50 UG, UNK
     Route: 055

REACTIONS (1)
  - Large intestine polyp [Recovered/Resolved]
